FAERS Safety Report 10971022 (Version 1)
Quarter: 2015Q1

REPORT INFORMATION
  Report Type: Spontaneous
  Country: US (occurrence: None)
  Receive Date: 20150330
  Receipt Date: 20150330
  Transmission Date: 20150721
  Serious: No
  Sender: FDA-Public Use
  Company Number: None

PATIENT
  Age: 61 Year
  Sex: Female
  Weight: 73.9 kg

DRUGS (14)
  1. TAXOL [Suspect]
     Active Substance: PACLITAXEL
     Dates: start: 20150320
  2. ASPIRIN. [Concomitant]
     Active Substance: ASPIRIN
  3. BIOTIN [Concomitant]
     Active Substance: BIOTIN
  4. FLAXSEED [Concomitant]
     Active Substance: FLAX SEED
  5. CARBOPLATIN. [Suspect]
     Active Substance: CARBOPLATIN
     Dates: start: 20150320
  6. TRAMADOL [Concomitant]
     Active Substance: TRAMADOL
  7. PROBIOTIC [Concomitant]
     Active Substance: PROBIOTICS NOS
  8. LORAZEPAM. [Concomitant]
     Active Substance: LORAZEPAM
  9. PROCHLORPERAZINE MALEATE. [Concomitant]
     Active Substance: PROCHLORPERAZINE MALEATE
  10. BEVACIZUMAB  (RHUMAB VEGF) [Suspect]
     Active Substance: BEVACIZUMAB
     Dates: start: 20150320
  11. ACETAMINOPHEN. [Concomitant]
     Active Substance: ACETAMINOPHEN
  12. CITALOPRAM [Concomitant]
     Active Substance: CITALOPRAM HYDROBROMIDE
  13. MULTIVITAMIN [Concomitant]
     Active Substance: VITAMINS
  14. FISH OIL [Concomitant]
     Active Substance: FISH OIL

REACTIONS (13)
  - Chest discomfort [None]
  - Blood pressure decreased [None]
  - Vomiting [None]
  - Dyspnoea [None]
  - Nausea [None]
  - Rash [None]
  - Feeling abnormal [None]
  - Dyspepsia [None]
  - Heart rate increased [None]
  - Somnolence [None]
  - Infusion related reaction [None]
  - Feeling hot [None]
  - Erythema [None]

NARRATIVE: CASE EVENT DATE: 20150320
